FAERS Safety Report 6535046-0 (Version None)
Quarter: 2010Q1

REPORT INFORMATION
  Report Type: 
  Country: None (occurrence: None)
  Receive Date: 20100111
  Receipt Date: 20100111
  Transmission Date: 20100710
  Serious: No
  Sender: FDA-Public Use
  Company Number: None

PATIENT
  Age: 70 Year
  Sex: Male
  Weight: 106.5953 kg

DRUGS (1)
  1. FLOMAX [Suspect]
     Indication: PROSTATITIS
     Dosage: 1 PILL ONCE A DAY BUCCAL
     Route: 002
     Dates: start: 20100107, end: 20100107

REACTIONS (1)
  - SYNCOPE [None]
